FAERS Safety Report 14441854 (Version 1)
Quarter: 2018Q1

REPORT INFORMATION
  Report Type: Spontaneous
  Country: CO (occurrence: CO)
  Receive Date: 20180125
  Receipt Date: 20180125
  Transmission Date: 20180509
  Serious: Yes (Disabling)
  Sender: FDA-Public Use
  Company Number: CO-CELLTRION INC.-2018CO017495

PATIENT

DRUGS (2)
  1. REMSIMA [Suspect]
     Active Substance: INFLIXIMAB
     Indication: RHEUMATOID ARTHRITIS
     Dosage: 300 MG, 6 WEEKS
     Route: 042
     Dates: start: 20151216, end: 20151216
  2. REMSIMA [Suspect]
     Active Substance: INFLIXIMAB
     Dosage: 300 MG, 6 WEEKS
     Route: 042
     Dates: start: 20171128, end: 20171128

REACTIONS (1)
  - Therapy non-responder [Not Recovered/Not Resolved]

NARRATIVE: CASE EVENT DATE: 201801
